FAERS Safety Report 6669678-6 (Version None)
Quarter: 2010Q2

REPORT INFORMATION
  Report Type: 
  Country: None (occurrence: None)
  Receive Date: 20100406
  Receipt Date: 20100330
  Transmission Date: 20101027
  Serious: Yes (Other)
  Sender: FDA-Public Use
  Company Number: GB-ABBOTT-10P-167-0635740-00

PATIENT
  Sex: Female

DRUGS (5)
  1. KLARICID TABLETS [Suspect]
     Indication: ESCHERICHIA INFECTION
     Route: 048
  2. KLARICID TABLETS [Suspect]
     Route: 048
     Dates: end: 20100322
  3. ANTIHISTAMINES [Concomitant]
     Indication: DRUG USE FOR UNKNOWN INDICATION
  4. AMITRIPTYLINE HCL [Concomitant]
     Indication: DRUG USE FOR UNKNOWN INDICATION
  5. EPIPEN [Concomitant]
     Indication: DRUG USE FOR UNKNOWN INDICATION

REACTIONS (12)
  - BURNING SENSATION [None]
  - CHROMATURIA [None]
  - CONFUSIONAL STATE [None]
  - DIZZINESS [None]
  - DYSPNOEA [None]
  - HALLUCINATION [None]
  - HEADACHE [None]
  - PANIC ATTACK [None]
  - PARAESTHESIA [None]
  - SYNCOPE [None]
  - URTICARIA [None]
  - WHITE BLOOD CELL COUNT DECREASED [None]
